FAERS Safety Report 14000805 (Version 1)
Quarter: 2017Q3

REPORT INFORMATION
  Report Type: Spontaneous
  Country: US (occurrence: US)
  Receive Date: 20170922
  Receipt Date: 20170922
  Transmission Date: 20171128
  Serious: Yes (Hospitalization)
  Sender: FDA-Public Use
  Company Number: US-PIRAMAL CRITICAL CARE LIMITED-T201103030

PATIENT

DRUGS (1)
  1. GABLOFEN [Suspect]
     Active Substance: BACLOFEN
     Indication: PRODUCT USED FOR UNKNOWN INDICATION
     Dosage: UNK
     Route: 037

REACTIONS (12)
  - Irritability [Recovered/Resolved]
  - Anxiety [Recovered/Resolved]
  - Pain [Recovered/Resolved]
  - Staphylococcal infection [Recovered/Resolved]
  - Head banging [Recovered/Resolved]
  - Insomnia [Recovered/Resolved]
  - Purulent discharge [Recovered/Resolved]
  - Device malfunction [Recovered/Resolved]
  - Hypertonia [Recovered/Resolved]
  - Implant site infection [Recovered/Resolved]
  - Muscle spasticity [Recovered/Resolved]
  - Device occlusion [Recovered/Resolved]

NARRATIVE: CASE EVENT DATE: 20110914
